FAERS Safety Report 6343430-3 (Version None)
Quarter: 2009Q3

REPORT INFORMATION
  Report Type: 
  Country: None (occurrence: None)
  Receive Date: 20090908
  Receipt Date: 20090903
  Transmission Date: 20100115
  Serious: Yes (Death)
  Sender: FDA-Public Use
  Company Number: PHHY2009BR37408

PATIENT
  Sex: Female

DRUGS (1)
  1. ACLASTA [Suspect]

REACTIONS (1)
  - DEATH [None]
